FAERS Safety Report 5676146-7 (Version None)
Quarter: 2008Q1

REPORT INFORMATION
  Report Type: 
  Country: None (occurrence: None)
  Receive Date: 20080321
  Receipt Date: 20080314
  Transmission Date: 20080703
  Serious: Yes (Hospitalization)
  Sender: FDA-Public Use
  Company Number: US-BAXTER-2008BH000384

PATIENT
  Age: 5 Year
  Sex: Male
  Weight: 17 kg

DRUGS (21)
  1. HEPARIN SODIUM [Suspect]
     Indication: PROPHYLAXIS
     Route: 040
     Dates: start: 20070808, end: 20071119
  2. HEPARIN SODIUM [Suspect]
     Indication: ANTICOAGULATION DRUG LEVEL THERAPEUTIC
     Route: 040
     Dates: start: 20070808, end: 20071119
  3. HEPARIN SODIUM [Suspect]
     Route: 040
     Dates: start: 20070808, end: 20071119
  4. HEPARIN SODIUM [Suspect]
     Route: 040
     Dates: start: 20070808, end: 20071119
  5. HEPARIN SODIUM [Suspect]
     Route: 040
     Dates: start: 20070808, end: 20071119
  6. HEPARIN SODIUM [Suspect]
     Route: 040
     Dates: start: 20070808, end: 20071119
  7. HEPARIN SODIUM [Suspect]
     Route: 041
     Dates: start: 20070808, end: 20071119
  8. HEPARIN SODIUM [Suspect]
     Route: 041
     Dates: start: 20070808, end: 20071119
  9. HEPARIN SODIUM [Suspect]
     Route: 041
     Dates: start: 20070808, end: 20071119
  10. HEPARIN SODIUM [Suspect]
     Route: 041
     Dates: start: 20070808, end: 20071119
  11. HEPARIN SODIUM [Suspect]
     Route: 041
     Dates: start: 20070808, end: 20071119
  12. HEPARIN SODIUM [Suspect]
     Route: 041
     Dates: start: 20070808, end: 20071119
  13. ARANESP [Concomitant]
     Indication: ANAEMIA
     Route: 042
     Dates: start: 20070511
  14. PHOSLO [Concomitant]
     Indication: HYPERPHOSPHATAEMIA
     Route: 048
     Dates: start: 20070102
  15. RENAL VITAMIN [Concomitant]
     Indication: MEDICAL DIET
     Route: 048
     Dates: start: 20071111
  16. PEPCID [Concomitant]
     Indication: GASTRIC ULCER
     Route: 048
     Dates: start: 20050407
  17. ZEMPLAR [Concomitant]
     Indication: HYPERTHYROIDISM
     Route: 048
     Dates: start: 20071109
  18. COZAAR [Concomitant]
     Indication: HYPERTENSION
     Route: 048
     Dates: start: 20071109
  19. RENAGEL [Concomitant]
     Indication: HYPERPHOSPHATASAEMIA
     Route: 048
     Dates: start: 20070808
  20. KAYEXALATE [Concomitant]
     Indication: HYPERKALAEMIA
     Route: 048
     Dates: start: 20070808
  21. LISINOPRIL [Concomitant]
     Indication: HYPERTENSION
     Route: 048
     Dates: start: 20050422

REACTIONS (5)
  - ANAPHYLACTIC REACTION [None]
  - HEADACHE [None]
  - HYPOTENSION [None]
  - TACHYARRHYTHMIA [None]
  - VOMITING [None]
